FAERS Safety Report 8327558-4 (Version None)
Quarter: 2012Q2

REPORT INFORMATION
  Report Type: 
  Country: None (occurrence: None)
  Receive Date: 20120502
  Receipt Date: 20120421
  Transmission Date: 20120825
  Serious: No
  Sender: FDA-Public Use
  Company Number: US-BAYER-2012-040436

PATIENT

DRUGS (1)
  1. NAPROXEN SODIUM [Suspect]
     Indication: HEADACHE
     Dosage: 3 U, UNK
     Route: 048
     Dates: start: 20120421

REACTIONS (2)
  - HEADACHE [None]
  - NO ADVERSE EVENT [None]
